FAERS Safety Report 8159443-5 (Version None)
Quarter: 2012Q1

REPORT INFORMATION
  Report Type: 
  Country: None (occurrence: None)
  Receive Date: 20120223
  Receipt Date: 20120214
  Transmission Date: 20120608
  Serious: Yes (Other)
  Sender: FDA-Public Use
  Company Number: US-SHIRE-ALL1-2012-00911

PATIENT
  Sex: Female
  Weight: 70.295 kg

DRUGS (9)
  1. STOOL SOFTENER [Concomitant]
     Indication: CONSTIPATION PROPHYLAXIS
     Dosage: 100 MG, 3X/DAY:TID
     Route: 048
     Dates: start: 20080101
  2. IBUPROFEN (ADVIL) [Concomitant]
     Indication: BACK PAIN
     Dosage: 200 MG, 4X/DAY:QID
     Route: 048
     Dates: start: 20110801
  3. SYNTHROID [Concomitant]
     Indication: AUTOIMMUNE THYROIDITIS
     Dosage: 50 ?G, 1X/DAY:QD
     Route: 048
     Dates: start: 20110101
  4. VYVANSE [Suspect]
     Indication: ATTENTION DEFICIT/HYPERACTIVITY DISORDER
     Dosage: 50 MG, 1X/DAY:QD
     Route: 048
     Dates: start: 20120126, end: 20120213
  5. NAPROXEN (ALEVE) [Concomitant]
     Indication: BACK PAIN
     Dosage: 220 MG, 2X/DAY:BID
     Route: 048
     Dates: start: 20110801
  6. LORATADINE [Concomitant]
     Indication: PROPHYLAXIS
     Dosage: 10 MG, 1X/DAY:QD
     Route: 048
     Dates: start: 20100101
  7. METHOCARBAMOL [Concomitant]
     Indication: BACK PAIN
     Dosage: 750 MG, 3X/DAY:TID
     Route: 048
     Dates: start: 20110801
  8. NEURONTIN [Concomitant]
     Indication: NEURALGIA
     Dosage: 300 MG, 3X/DAY:TID
     Route: 048
     Dates: start: 20110801
  9. HYDROCODONE [Concomitant]
     Indication: BACK PAIN
     Dosage: 5/500 MG, AS REQ'D (EVERY 6 HOURS)
     Route: 048
     Dates: start: 20110801

REACTIONS (7)
  - MUSCLE SPASMS [None]
  - HYPOAESTHESIA [None]
  - DYSKINESIA [None]
  - CONDITION AGGRAVATED [None]
  - WHITE BLOOD CELL COUNT INCREASED [None]
  - TREMOR [None]
  - PARAESTHESIA [None]
